FAERS Safety Report 4978159-7 (Version None)
Quarter: 2006Q2

REPORT INFORMATION
  Report Type: 
  Country: None (occurrence: None)
  Receive Date: 20060417
  Receipt Date: 20060404
  Transmission Date: 20061013
  Serious: Yes (Other)
  Sender: FDA-Public Use
  Company Number: 223499

PATIENT
  Age: 51 Year
  Sex: Male

DRUGS (5)
  1. NUTROPIN AQ [Suspect]
     Indication: PITUITARY TUMOUR BENIGN
     Dosage: 0,.8 MG, SUBCUTANEOUS
     Route: 058
     Dates: start: 20050124
  2. CRESTOR [Concomitant]
  3. HYDROCHLOROTHIAZIDE/VALSARTAN (HYDROCHLOROTHIAZIDE , VALSARTAN) [Concomitant]
  4. LYRICA [Concomitant]
  5. MELOXICAM (MELOXICAM) [Concomitant]

REACTIONS (2)
  - CONVULSION [None]
  - DIABETES MELLITUS NON-INSULIN-DEPENDENT [None]
